FAERS Safety Report 16182660 (Version 2)
Quarter: 2019Q2

REPORT INFORMATION
  Report Type: Spontaneous
  Country: US (occurrence: US)
  Receive Date: 20190411
  Receipt Date: 20190510
  Transmission Date: 20190711
  Serious: Yes (Other)
  Sender: FDA-Public Use
  Company Number: US-009507513-1904USA004789

PATIENT
  Age: 25 Year
  Sex: Female
  Weight: 89.34 kg

DRUGS (3)
  1. NEXPLANON [Suspect]
     Active Substance: ETONOGESTREL
     Indication: CONTRACEPTION
     Dosage: 1 DOSAGE FORM
     Route: 059
     Dates: start: 20170116, end: 20190401
  2. TEGRETOL [Concomitant]
     Active Substance: CARBAMAZEPINE
     Dosage: 1 DOSAGE FORM, BID
     Route: 048
  3. KEPPRA [Concomitant]
     Active Substance: LEVETIRACETAM
     Dosage: 2 DOSAGE FORM, BID
     Route: 048

REACTIONS (2)
  - Unintended pregnancy [Not Recovered/Not Resolved]
  - Pregnancy with implant contraceptive [Not Recovered/Not Resolved]

NARRATIVE: CASE EVENT DATE: 20190222
